FAERS Safety Report 5335489-7 (Version None)
Quarter: 2007Q2

REPORT INFORMATION
  Report Type: 
  Country: None (occurrence: None)
  Receive Date: 20070322
  Receipt Date: 20061222
  Transmission Date: 20071010
  Serious: No
  Sender: FDA-Public Use
  Company Number: 2007US000030

PATIENT
  Age: 67 Year
  Sex: Female

DRUGS (25)
  1. VESICARE [Suspect]
     Indication: HYPERTONIC BLADDER
     Dosage: 5MG UID/QD, ORAL
     Route: 048
     Dates: start: 20061220
  2. HCL (POTASSIUM CHLORIDE) [Concomitant]
  3. HYZAAR [Concomitant]
  4. LEVOTHYROXINE SODIUM [Concomitant]
  5. LIPITOR [Concomitant]
  6. METFORMIN (METFORMIN HYDROCHLORIDE) [Concomitant]
  7. RANITIDINE HCL [Concomitant]
  8. ALLEGRA [Concomitant]
  9. ASMAC (ALLOBARBITAL, EPHEDRINE HYDROCHLORIDE,AMINOPHYLLINE, CEPHAELIS [Concomitant]
  10. SEREVENT [Concomitant]
  11. ALBUTEROL (SALBUTAMOL SULFATE) [Concomitant]
  12. PROPOX-N (DEXTROPROPOXYPHENE NAPSILATE) [Concomitant]
  13. SOMA [Concomitant]
  14. ALPRAZOLAM [Concomitant]
  15. ADVIL (PSEUDOEPHEDRINE HYDRICHLORIDE) [Concomitant]
  16. MULTIVITAMIN [Concomitant]
  17. OMEGA-3 FATTY ACIDS (OMEGA-3 FATTY ACIDS) [Concomitant]
  18. CALCIUM MAGNESIUM              (MAGNESIUM, CALCIUM) [Concomitant]
  19. B12 (CYANOCOBALAMIN-TANNIN COMPLEX) [Concomitant]
  20. ASCORBIC ACID [Concomitant]
  21. RUTIN-C (ASCORBIC ACID, RUTOSIDE) [Concomitant]
  22. GLUCOSAMINE (COD-LIVER OIL) [Concomitant]
  23. MSM (METHYLSULFONYLMETHANE) [Concomitant]
  24. STOOL SOFTENER   (DOCUSATE SODIUM) [Concomitant]
  25. SENNA (SENNA ALEXANDRINA) [Concomitant]

REACTIONS (1)
  - BLOOD GLUCOSE INCREASED [None]
